FAERS Safety Report 17370690 (Version 5)
Quarter: 2020Q3

REPORT INFORMATION
  Report Type: Report from Study
  Country: US (occurrence: US)
  Receive Date: 20200205
  Receipt Date: 20200723
  Transmission Date: 20201102
  Serious: Yes (Hospitalization)
  Sender: FDA-Public Use
  Company Number: US-ACTELION-A-NJ2020-200081

PATIENT
  Sex: Female

DRUGS (4)
  1. MINIMS [Concomitant]
  2. PLAQUENIL S [Concomitant]
     Active Substance: HYDROXYCHLOROQUINE SULFATE
     Dosage: 200 MG
  3. OPSUMIT [Suspect]
     Active Substance: MACITENTAN
     Indication: PULMONARY HYPERTENSION
     Dosage: 10 MG, QD
     Route: 048
     Dates: start: 20191108
  4. ATORVASTATIN [Concomitant]
     Active Substance: ATORVASTATIN
     Dosage: 80 MG

REACTIONS (12)
  - Fatigue [Unknown]
  - Hypertension [Unknown]
  - Oxygen saturation decreased [Unknown]
  - Psychotic behaviour [Not Recovered/Not Resolved]
  - Chest pain [Unknown]
  - Insomnia [Unknown]
  - Decreased appetite [Unknown]
  - Pruritus [Unknown]
  - Pyrexia [Unknown]
  - Dizziness [Unknown]
  - Hyperhidrosis [Unknown]
  - Product dose omission issue [Unknown]
